FAERS Safety Report 14921703 (Version 1)
Quarter: 2018Q2

REPORT INFORMATION
  Report Type: Report from Study
  Country: US (occurrence: US)
  Receive Date: 20180522
  Receipt Date: 20180522
  Transmission Date: 20180711
  Serious: Yes (Other)
  Sender: FDA-Public Use
  Company Number: US-ROCHE-2124527

PATIENT
  Sex: Female

DRUGS (3)
  1. AVASTIN [Suspect]
     Active Substance: BEVACIZUMAB
     Indication: CHOROIDAL NEOVASCULARISATION
  2. AVASTIN [Suspect]
     Active Substance: BEVACIZUMAB
     Indication: PATHOLOGIC MYOPIA
  3. AVASTIN [Suspect]
     Active Substance: BEVACIZUMAB
     Indication: NEOVASCULAR AGE-RELATED MACULAR DEGENERATION
     Dosage: LEFT EYE ;ONGOING: UNKNOWN
     Route: 065
     Dates: start: 201710

REACTIONS (6)
  - Ocular discomfort [Unknown]
  - Visual impairment [Unknown]
  - Pain [Unknown]
  - Ocular hyperaemia [Unknown]
  - Vascular rupture [Unknown]
  - Drug ineffective [Unknown]
